FAERS Safety Report 10102045 (Version 1)
Quarter: 2014Q2

REPORT INFORMATION
  Report Type: Spontaneous
  Country: US (occurrence: US)
  Receive Date: 20140424
  Receipt Date: 20140424
  Transmission Date: 20141212
  Serious: Yes (Other)
  Sender: FDA-Public Use
  Company Number: US-FRI-1000066722

PATIENT
  Age: 45 Year
  Sex: Female

DRUGS (1)
  1. VIIBRYD [Suspect]
     Indication: DEPRESSION
     Dosage: 20 MG

REACTIONS (1)
  - Blindness unilateral [Not Recovered/Not Resolved]
